FAERS Safety Report 5056300-8 (Version None)
Quarter: 2006Q3

REPORT INFORMATION
  Report Type: 
  Country: None (occurrence: None)
  Receive Date: 20060717
  Receipt Date: 20060630
  Transmission Date: 20061208
  Serious: Yes (Other)
  Sender: FDA-Public Use
  Company Number: 224231

PATIENT
  Age: 71 Year
  Sex: Female
  Weight: 65 kg

DRUGS (5)
  1. HERCEPTIN [Suspect]
     Indication: BREAST CANCER
     Dosage: SEE IMAGE, INTRAVENOUS
     Route: 042
     Dates: start: 20060207, end: 20060329
  2. TAXOL [Concomitant]
  3. ZANTAC [Concomitant]
  4. RESTAMIN (CHLORPHENIRAMINE MALEATE) [Concomitant]
  5. DECADRON [Concomitant]

REACTIONS (3)
  - ERYTHEMA [None]
  - PRURITUS [None]
  - WHITE BLOOD CELL COUNT DECREASED [None]
